FAERS Safety Report 6631348-8 (Version None)
Quarter: 2010Q1

REPORT INFORMATION
  Report Type: 
  Country: None (occurrence: None)
  Receive Date: 20100311
  Receipt Date: 20100311
  Transmission Date: 20100710
  Serious: No
  Sender: FDA-Public Use
  Company Number: None

PATIENT
  Sex: Female
  Weight: 72.5755 kg

DRUGS (1)
  1. MINOCYCLINE HCL [Suspect]
     Dosage: 100 MG BID PO
     Route: 048
     Dates: start: 20090911, end: 20090919

REACTIONS (1)
  - DIZZINESS [None]
